FAERS Safety Report 10520795 (Version 2)
Quarter: 2014Q4

REPORT INFORMATION
  Report Type: Report from Study
  Country: US (occurrence: US)
  Receive Date: 20141015
  Receipt Date: 20141015
  Transmission Date: 20150528
  Serious: Yes (Other)
  Sender: FDA-Public Use
  Company Number: PHEH2014US005760

PATIENT
  Age: 33 Year
  Sex: Female
  Weight: 49.89 kg

DRUGS (4)
  1. ROBITUSSIN                         /00200801/ [Concomitant]
     Indication: RESPIRATORY TRACT CONGESTION
     Route: 065
  2. TYLENOL [Concomitant]
     Active Substance: ACETAMINOPHEN
     Indication: PRODUCT USED FOR UNKNOWN INDICATION
     Route: 065
  3. GILENYA [Suspect]
     Active Substance: FINGOLIMOD HYDROCHLORIDE
     Indication: RELAPSING-REMITTING MULTIPLE SCLEROSIS
     Dosage: 0.5 MG, QD
     Route: 048
     Dates: start: 20140319
  4. NAPROXEN. [Concomitant]
     Active Substance: NAPROXEN
     Indication: PRODUCT USED FOR UNKNOWN INDICATION
     Route: 065

REACTIONS (14)
  - Abdominal pain lower [Unknown]
  - Back pain [Unknown]
  - Hernia [Unknown]
  - Anxiety [Unknown]
  - Chromaturia [Unknown]
  - Insomnia [Unknown]
  - Pain in extremity [Unknown]
  - Palpitations [Recovered/Resolved]
  - Gastrointestinal disorder [Unknown]
  - Panic attack [Recovered/Resolved]
  - Pelvic pain [Unknown]
  - Chest pain [Unknown]
  - Bladder disorder [Unknown]
  - Cough [Unknown]

NARRATIVE: CASE EVENT DATE: 20140319
